FAERS Safety Report 15073092 (Version 2)
Quarter: 2018Q3

REPORT INFORMATION
  Report Type: Report from Study
  Country: US (occurrence: US)
  Receive Date: 20180627
  Receipt Date: 20180702
  Transmission Date: 20181010
  Serious: Yes (Other)
  Sender: FDA-Public Use
  Company Number: US-TEVA-2018-US-907342

PATIENT
  Sex: Male

DRUGS (1)
  1. CLARAVIS [Suspect]
     Active Substance: ISOTRETINOIN
     Indication: ACNE
     Dosage: 10MG QOD THEN 10MG QD
     Route: 065
     Dates: start: 20171102, end: 20180331

REACTIONS (4)
  - Aggression [Unknown]
  - Major depression [Unknown]
  - Suicidal ideation [Unknown]
  - Thinking abnormal [Unknown]
